FAERS Safety Report 6753073-5 (Version None)
Quarter: 2010Q2

REPORT INFORMATION
  Report Type: 
  Country: None (occurrence: None)
  Receive Date: 20100603
  Receipt Date: 20100520
  Transmission Date: 20101027
  Serious: Yes (Other)
  Sender: FDA-Public Use
  Company Number: PHHY2010MT33087

PATIENT
  Sex: Male

DRUGS (1)
  1. RASILEZ HCT [Suspect]
     Indication: HYPERTENSION
     Dosage: 300/25 MG
     Route: 048
     Dates: start: 20100501, end: 20100501

REACTIONS (5)
  - BLOOD GLUCOSE DECREASED [None]
  - BLOOD PRESSURE DECREASED [None]
  - DIZZINESS [None]
  - HYPERHIDROSIS [None]
  - SYNCOPE [None]
